FAERS Safety Report 4919862-4 (Version None)
Quarter: 2006Q1

REPORT INFORMATION
  Report Type: 
  Country: None (occurrence: None)
  Receive Date: 20060221
  Receipt Date: 20060221
  Transmission Date: 20060701
  Serious: Yes (Hospitalization, Other)
  Sender: FDA-Public Use
  Company Number: None

PATIENT
  Sex: Male
  Weight: 83.6 kg

DRUGS (8)
  1. CARBOPLATIN [Suspect]
     Indication: LUNG SQUAMOUS CELL CARCINOMA STAGE UNSPECIFIED
     Dosage: 209 MG
     Dates: start: 20060206, end: 20060213
  2. ASPIRIN [Concomitant]
  3. DARVOCET [Concomitant]
  4. ISOSORB MONO [Concomitant]
  5. LIPITOR [Concomitant]
  6. PROPO-N [Concomitant]
  7. TOPROL-XL [Concomitant]
  8. ASCORBIC ACID [Concomitant]

REACTIONS (3)
  - BACTERIAL INFECTION [None]
  - BLOOD CULTURE POSITIVE [None]
  - URINARY TRACT INFECTION [None]
